FAERS Safety Report 8475984-5 (Version None)
Quarter: 2012Q2

REPORT INFORMATION
  Report Type: 
  Country: None (occurrence: None)
  Receive Date: 20120628
  Receipt Date: 20120619
  Transmission Date: 20120825
  Serious: Yes (Hospitalization, Other)
  Sender: FDA-Public Use
  Company Number: US-MERCK-1206USA03238

PATIENT
  Age: 64 Year
  Sex: Male
  Weight: 77 kg

DRUGS (5)
  1. LEVOTHYROXINE SODIUM [Concomitant]
     Indication: HYPOTHYROIDISM
     Route: 065
  2. VYTORIN [Suspect]
     Indication: BLOOD CHOLESTEROL INCREASED
     Route: 048
     Dates: end: 20120401
  3. LEVETIRACETAM [Concomitant]
     Indication: CONVULSION
     Route: 065
  4. LUPRON DEPOT [Suspect]
     Indication: PROSTATE CANCER
     Route: 065
     Dates: start: 20100101, end: 20111201
  5. CELECOXIB [Concomitant]
     Indication: DEPRESSION
     Route: 065

REACTIONS (8)
  - APHASIA [None]
  - ASTHENIA [None]
  - MOTOR DYSFUNCTION [None]
  - CEREBROVASCULAR ACCIDENT [None]
  - NAUSEA [None]
  - HYPERTENSION [None]
  - MUSCULOSKELETAL DISORDER [None]
  - FALL [None]
